FAERS Safety Report 7142034-2 (Version None)
Quarter: 2010Q4

REPORT INFORMATION
  Report Type: 
  Country: None (occurrence: None)
  Receive Date: 20101207
  Receipt Date: 20101129
  Transmission Date: 20110411
  Serious: Yes (Hospitalization)
  Sender: FDA-Public Use
  Company Number: A0898148A

PATIENT
  Age: 73 Year
  Sex: Female
  Weight: 67.7 kg

DRUGS (1)
  1. MELPHALAN [Suspect]
     Indication: MULTIPLE MYELOMA
     Dosage: 336MG SINGLE DOSE
     Route: 042
     Dates: start: 20101025, end: 20101025

REACTIONS (8)
  - BACK PAIN [None]
  - DEHYDRATION [None]
  - FEBRILE NEUTROPENIA [None]
  - MUCOSAL INFLAMMATION [None]
  - NAUSEA [None]
  - PYREXIA [None]
  - SPINAL COMPRESSION FRACTURE [None]
  - VOMITING [None]
